FAERS Safety Report 8217874-9 (Version None)
Quarter: 2012Q1

REPORT INFORMATION
  Report Type: 
  Country: None (occurrence: None)
  Receive Date: 20120319
  Receipt Date: 20120306
  Transmission Date: 20120608
  Serious: Yes (Hospitalization, Other)
  Sender: FDA-Public Use
  Company Number: JP-AMGEN-JPNSP2012013533

PATIENT
  Age: 60 Year
  Sex: Female

DRUGS (10)
  1. VOLTAREN [Concomitant]
     Dosage: UNK
  2. ENBREL [Suspect]
     Indication: RHEUMATOID ARTHRITIS
     Dosage: 50 MG, WEEKLY
     Route: 058
     Dates: start: 20101015, end: 20120201
  3. BONOTEO [Concomitant]
     Dosage: 50 MG, UNK
  4. VOLTAREN-XR [Concomitant]
     Dosage: UNK
  5. MICARDIS [Suspect]
     Dosage: 40 MG, UNK
  6. SITAGLIPTIN PHOSPHATE [Suspect]
     Dosage: 50 MG, UNK
  7. LIPITOR [Concomitant]
     Dosage: 5 MG, UNK
  8. LANSOPRAZOLE [Concomitant]
     Dosage: UNK
     Route: 048
  9. BASEN [Suspect]
     Dosage: 0.3 MG, UNK
  10. LANSOPRAZOLE [Concomitant]
     Dosage: UNK
     Route: 048

REACTIONS (7)
  - MALAISE [None]
  - NASOPHARYNGITIS [None]
  - PYREXIA [None]
  - SEPTIC SHOCK [None]
  - MULTI-ORGAN FAILURE [None]
  - BLOOD PRESSURE DECREASED [None]
  - DECREASED APPETITE [None]
